FAERS Safety Report 6116235-6 (Version None)
Quarter: 2009Q1

REPORT INFORMATION
  Report Type: 
  Country: None (occurrence: None)
  Receive Date: 20090314
  Receipt Date: 20081203
  Transmission Date: 20090719
  Serious: No
  Sender: FDA-Public Use
  Company Number: US-ABBOTT-08P-163-0490968-00

PATIENT
  Sex: Female
  Weight: 77.18 kg

DRUGS (5)
  1. HUMIRA [Suspect]
     Indication: RHEUMATOID ARTHRITIS
     Route: 058
     Dates: start: 20031201
  2. METFORMIN HCL [Concomitant]
     Indication: DIABETES MELLITUS
  3. GLYBURIDE [Concomitant]
     Indication: DIABETES MELLITUS
  4. DIAZIDE [Concomitant]
     Indication: BLOOD PRESSURE
  5. UNKNOWN PLOOD PRESSURE PILL [Concomitant]
     Indication: BLOOD PRESSURE

REACTIONS (1)
  - LOCALISED INFECTION [None]
